FAERS Safety Report 5735916-7 (Version None)
Quarter: 2008Q2

REPORT INFORMATION
  Report Type: 
  Country: None (occurrence: None)
  Receive Date: 20080509
  Receipt Date: 20080506
  Transmission Date: 20081010
  Serious: Yes (Other)
  Sender: FDA-Public Use
  Company Number: A0726913A

PATIENT
  Sex: Female

DRUGS (1)
  1. CAFFEINE CITRATE [Suspect]
     Indication: DRUG USE FOR UNKNOWN INDICATION
     Dosage: 1 TABLET / SINGLE DOSE / OAL
     Route: 048

REACTIONS (1)
  - MALAISE [None]
